FAERS Safety Report 24433123 (Version 2)
Quarter: 2024Q4

REPORT INFORMATION
  Report Type: Spontaneous
  Country: AU (occurrence: AU)
  Receive Date: 20241014
  Receipt Date: 20241021
  Transmission Date: 20250114
  Serious: Yes (Life-Threatening, Hospitalization, Other)
  Sender: SANOFI AVENTIS
  Company Number: AU-SA-2024SA291725

PATIENT
  Sex: Male

DRUGS (1)
  1. DUPIXENT [Suspect]
     Active Substance: DUPILUMAB
     Indication: Dermatitis atopic
     Dosage: UNK
     Route: 065
     Dates: start: 2024

REACTIONS (10)
  - Pneumonia [Unknown]
  - Thrombosis [Unknown]
  - Pulmonary thrombosis [Unknown]
  - Rash macular [Unknown]
  - Lacrimation increased [Unknown]
  - Dyspnoea [Not Recovered/Not Resolved]
  - Decreased activity [Unknown]
  - Urticaria [Unknown]
  - Dizziness [Unknown]
  - Dry eye [Unknown]

NARRATIVE: CASE EVENT DATE: 20240101
